FAERS Safety Report 10682678 (Version 3)
Quarter: 2015Q1

REPORT INFORMATION
  Report Type: Spontaneous
  Country: US (occurrence: US)
  Receive Date: 20141230
  Receipt Date: 20150123
  Transmission Date: 20150720
  Serious: Yes (Death, Hospitalization)
  Sender: FDA-Public Use
  Company Number: US-PFIZER INC-2014357557

PATIENT
  Age: 89 Year
  Sex: Female
  Weight: 71 kg

DRUGS (17)
  1. ARIMIDEX [Concomitant]
     Active Substance: ANASTROZOLE
     Indication: MOOD ALTERED
  2. PROTONIX [Concomitant]
     Active Substance: PANTOPRAZOLE SODIUM
     Indication: GASTROOESOPHAGEAL REFLUX DISEASE
     Dosage: 40 MG, 1X/DAY
     Route: 048
  3. SUTENT [Suspect]
     Active Substance: SUNITINIB MALATE
     Indication: GASTROINTESTINAL STROMAL TUMOUR
     Dosage: 25 MG, UNK
     Route: 048
     Dates: start: 201407
  4. ATORVASTATIN [Concomitant]
     Active Substance: ATORVASTATIN
     Indication: BLOOD CHOLESTEROL
     Dosage: 10 MG, AS NEEDED
  5. COREG [Concomitant]
     Active Substance: CARVEDILOL
     Indication: CARDIAC DISORDER
     Dosage: 6.25 MG, 2X/DAY
  6. ARIMIDEX [Concomitant]
     Active Substance: ANASTROZOLE
     Indication: FATIGUE
     Dosage: 1 MG, DAILY
     Route: 048
  7. MEGACE [Concomitant]
     Active Substance: MEGESTROL ACETATE
     Dosage: UNK
  8. LISINOPRIL. [Concomitant]
     Active Substance: LISINOPRIL
     Indication: BLOOD PRESSURE
     Dosage: 5 MG, 1X/DAY
     Route: 048
  9. LOMOTIL [Concomitant]
     Active Substance: ATROPINE SULFATE\DIPHENOXYLATE HYDROCHLORIDE
     Dosage: UNK
  10. BENAZEPRIL [Concomitant]
     Active Substance: BENAZEPRIL\BENAZEPRIL HYDROCHLORIDE
     Dosage: UNK
  11. SUTENT [Suspect]
     Active Substance: SUNITINIB MALATE
     Dosage: 12.5 MG, CYCLIC
     Route: 048
     Dates: start: 201408, end: 201411
  12. COUMADINE [Concomitant]
     Active Substance: WARFARIN SODIUM
     Indication: COAGULOPATHY
     Dosage: 5 MG, DAILY
     Route: 048
  13. REMERON [Concomitant]
     Active Substance: MIRTAZAPINE
     Indication: AFFECTIVE DISORDER
     Dosage: 15 MG, 1X/DAY (ONE AT BEDTIME)
  14. PRAVASTATIN [Concomitant]
     Active Substance: PRAVASTATIN\PRAVASTATIN SODIUM
     Dosage: UNK
  15. SPIRONOLACTONE. [Concomitant]
     Active Substance: SPIRONOLACTONE
     Indication: BLOOD PRESSURE
     Dosage: 50 MG, 1X/DAY
  16. AMLODIPINE [Concomitant]
     Active Substance: AMLODIPINE BESYLATE
     Indication: BLOOD PRESSURE
     Dosage: 5 MG, 1X/DAY
  17. NORCO [Concomitant]
     Active Substance: ACETAMINOPHEN\HYDROCODONE BITARTRATE
     Dosage: UNK

REACTIONS (9)
  - Gastrointestinal stromal tumour [Fatal]
  - Pain [Unknown]
  - Acute kidney injury [Fatal]
  - Respiratory failure [Fatal]
  - Disease progression [Fatal]
  - Asthenia [Unknown]
  - Movement disorder [Unknown]
  - Pleural effusion [Fatal]
  - Abasia [Unknown]

NARRATIVE: CASE EVENT DATE: 2014
